FAERS Safety Report 9442163 (Version 1)
Quarter: 2013Q4

REPORT INFORMATION
  Report Type: Spontaneous
  Country: US (occurrence: None)
  Receive Date: 20130805
  Receipt Date: 20130805
  Transmission Date: 20140711
  Serious: Yes (Hospitalization)
  Sender: FDA-Public Use
  Company Number: None

PATIENT
  Age: 66 Year
  Sex: Male
  Weight: 92.7 kg

DRUGS (12)
  1. SIMVASTATIN [Suspect]
     Indication: HYPERLIPIDAEMIA
  2. ASPIRIN [Concomitant]
  3. METOPROLOL [Concomitant]
  4. LOSARTAN [Concomitant]
  5. FUROSEMIDE [Concomitant]
  6. TERAZOSIN [Concomitant]
  7. HYDRALAZINE [Concomitant]
  8. CLONIDINE [Concomitant]
  9. RANITIDINE [Concomitant]
  10. INSULIN [Concomitant]
  11. COSOPT EYE DROPS [Concomitant]
  12. BRIMONIDINE EYE DROPS [Concomitant]

REACTIONS (1)
  - Pancreatitis [None]
